FAERS Safety Report 25459482 (Version 1)
Quarter: 2025Q2

REPORT INFORMATION
  Report Type: Report from Study
  Country: US (occurrence: US)
  Receive Date: 20250620
  Receipt Date: 20250620
  Transmission Date: 20250717
  Serious: Yes (Other)
  Sender: TAKEDA
  Company Number: US-TAKEDA-2025TUS054819

PATIENT
  Sex: Female

DRUGS (1)
  1. VEDOLIZUMAB [Suspect]
     Active Substance: VEDOLIZUMAB
     Indication: Product used for unknown indication

REACTIONS (9)
  - Haematochezia [Unknown]
  - Product dose omission issue [Unknown]
  - Mucous stools [Unknown]
  - Defaecation urgency [Unknown]
  - Rectal tenesmus [Unknown]
  - Diarrhoea [Unknown]
  - Premature menopause [Unknown]
  - Condition aggravated [Unknown]
  - Abdominal pain [Unknown]
